FAERS Safety Report 25753876 (Version 1)
Quarter: 2025Q3

REPORT INFORMATION
  Report Type: Spontaneous
  Country: KR (occurrence: KR)
  Receive Date: 20250903
  Receipt Date: 20250903
  Transmission Date: 20251021
  Serious: Yes (Hospitalization, Other)
  Sender: BEIGENE
  Company Number: KR-CELLTRION INC.-2025KR016701

PATIENT

DRUGS (5)
  1. BRUKINSA [Suspect]
     Active Substance: ZANUBRUTINIB
     Indication: Diffuse large B-cell lymphoma
  2. TRUXIMA [Suspect]
     Active Substance: RITUXIMAB-ABBS
     Indication: Diffuse large B-cell lymphoma
  3. CARBOPLATIN [Suspect]
     Active Substance: CARBOPLATIN
     Indication: Diffuse large B-cell lymphoma
  4. ETOPOSIDE [Suspect]
     Active Substance: ETOPOSIDE
     Indication: Diffuse large B-cell lymphoma
  5. IFOSFAMIDE [Suspect]
     Active Substance: IFOSFAMIDE
     Indication: Diffuse large B-cell lymphoma

REACTIONS (5)
  - Disease progression [Unknown]
  - Nausea [Unknown]
  - Pyrexia [Unknown]
  - Product use issue [Unknown]
  - Off label use [Unknown]
